FAERS Safety Report 4830176-3 (Version None)
Quarter: 2005Q4

REPORT INFORMATION
  Report Type: 
  Country: None (occurrence: None)
  Receive Date: 20051117
  Receipt Date: 20050810
  Transmission Date: 20060501
  Serious: Yes (Hospitalization, Disabling)
  Sender: FDA-Public Use
  Company Number: US-MERCK-0508USA02012

PATIENT
  Age: 53 Year
  Sex: Female
  Weight: 172 kg

DRUGS (9)
  1. VIOXX [Suspect]
     Indication: ARTHRITIS
     Route: 048
     Dates: start: 20000401, end: 20040601
  2. EFFEXOR [Concomitant]
     Indication: DEPRESSION
     Route: 065
     Dates: start: 20000101, end: 20050501
  3. BUSPAR [Concomitant]
     Indication: DEPRESSION
     Route: 065
     Dates: start: 20010101
  4. CARDIZEM CD [Concomitant]
     Indication: HYPERTENSION
     Route: 048
     Dates: start: 19950101, end: 20031201
  5. DEMADEX [Concomitant]
     Route: 065
     Dates: start: 19950101
  6. ZOCOR [Concomitant]
     Indication: BLOOD CHOLESTEROL INCREASED
     Route: 048
     Dates: start: 20010101, end: 20050401
  7. COZAAR [Concomitant]
     Indication: HYPERTENSION
     Route: 048
     Dates: start: 20031201
  8. COZAAR [Concomitant]
     Indication: CARDIAC DISORDER
     Route: 048
     Dates: start: 20031201
  9. ATIVAN [Concomitant]
     Indication: DEPRESSION
     Route: 048
     Dates: start: 20020101

REACTIONS (14)
  - ANGINA PECTORIS [None]
  - APPENDICITIS [None]
  - CORNEAL TRANSPLANT [None]
  - DEPRESSION [None]
  - DYSPEPSIA [None]
  - DYSPNOEA [None]
  - FATIGUE [None]
  - GASTROOESOPHAGEAL REFLUX DISEASE [None]
  - HERNIA [None]
  - JOINT INJURY [None]
  - KERATOCONUS [None]
  - MITRAL VALVE PROLAPSE [None]
  - MYOCARDIAL INFARCTION [None]
  - OEDEMA PERIPHERAL [None]
